FAERS Safety Report 6439251-3 (Version None)
Quarter: 2009Q4

REPORT INFORMATION
  Report Type: 
  Country: None (occurrence: None)
  Receive Date: 20091110
  Receipt Date: 20091026
  Transmission Date: 20100525
  Serious: Yes (Death)
  Sender: FDA-Public Use
  Company Number: 2009AC000250

PATIENT
  Age: 71 Year
  Sex: Female

DRUGS (13)
  1. DIGOXIN [Suspect]
     Dosage: 0.125 MG;QD;PO
     Route: 048
     Dates: start: 20070601
  2. PROTONIX [Concomitant]
  3. COREG [Concomitant]
  4. PROCARDIA [Concomitant]
  5. ALBUTEROL SULFATE AUTOHALER [Concomitant]
  6. OXYGEN [Concomitant]
  7. TORADOL [Concomitant]
  8. ALTACE [Concomitant]
  9. CORDARONE [Concomitant]
  10. XOPENEX [Concomitant]
  11. LASIX [Concomitant]
  12. AMIODARONE HCL [Concomitant]
  13. POTASSIUM CHLORIDE [Concomitant]

REACTIONS (32)
  - ABASIA [None]
  - BALANCE DISORDER [None]
  - BLINDNESS UNILATERAL [None]
  - CACHEXIA [None]
  - CARDIAC FAILURE CONGESTIVE [None]
  - CARDIOACTIVE DRUG LEVEL INCREASED [None]
  - CHEST PAIN [None]
  - COLITIS ISCHAEMIC [None]
  - CONDITION AGGRAVATED [None]
  - CORONARY ARTERY DISEASE [None]
  - CULTURE URINE POSITIVE [None]
  - DECREASED APPETITE [None]
  - DEHYDRATION [None]
  - DIZZINESS [None]
  - DYSPNOEA [None]
  - ECONOMIC PROBLEM [None]
  - FAMILY STRESS [None]
  - FATIGUE [None]
  - HEPATIC ENZYME ABNORMAL [None]
  - HYPERTENSION [None]
  - ILL-DEFINED DISORDER [None]
  - KLEBSIELLA INFECTION [None]
  - LOSS OF EMPLOYMENT [None]
  - MALNUTRITION [None]
  - MULTIPLE INJURIES [None]
  - MYELOFIBROSIS [None]
  - PAIN [None]
  - PERIPHERAL ARTERIAL OCCLUSIVE DISEASE [None]
  - SOCIAL PROBLEM [None]
  - THERAPEUTIC AGENT TOXICITY [None]
  - VASCULAR GRAFT [None]
  - VISUAL ACUITY REDUCED [None]
